FAERS Safety Report 9008985 (Version 1)
Quarter: 2013Q1

REPORT INFORMATION
  Report Type: Spontaneous
  Country: GB (occurrence: GB)
  Receive Date: 20130111
  Receipt Date: 20130111
  Transmission Date: 20140127
  Serious: Yes (Hospitalization, Other)
  Sender: FDA-Public Use
  Company Number: GB-BAYER-2013-002807

PATIENT
  Age: 44 Year
  Sex: Male

DRUGS (1)
  1. CIPROFLOXACIN [Suspect]
     Indication: DIARRHOEA HAEMORRHAGIC
     Dosage: UNK
     Route: 048

REACTIONS (2)
  - Haemolytic uraemic syndrome [Recovered/Resolved]
  - Grand mal convulsion [Recovered/Resolved]
